FAERS Safety Report 15006504 (Version 1)
Quarter: 2018Q2

REPORT INFORMATION
  Report Type: Report from Study
  Country: US (occurrence: US)
  Receive Date: 20180613
  Receipt Date: 20180613
  Transmission Date: 20180711
  Serious: Yes (Death, Hospitalization)
  Sender: FDA-Public Use
  Company Number: US-US WORLDMEDS, LLC-USW201707-001076

PATIENT
  Age: 77 Year
  Sex: Male

DRUGS (15)
  1. APOKYN [Suspect]
     Active Substance: APOMORPHINE HYDROCHLORIDE
     Indication: PARKINSON^S DISEASE
     Route: 058
     Dates: start: 20170627, end: 20170718
  2. DULOXETINE. [Concomitant]
     Active Substance: DULOXETINE
     Dates: start: 20160725
  3. LYRICA [Concomitant]
     Active Substance: PREGABALIN
     Dates: start: 20160802
  4. OMEPRAZOLE. [Concomitant]
     Active Substance: OMEPRAZOLE
     Dates: start: 20160725
  5. MIRTAZAPINE. [Concomitant]
     Active Substance: MIRTAZAPINE
     Dates: start: 20160725
  6. TIGAN [Concomitant]
     Active Substance: TRIMETHOBENZAMIDE HYDROCHLORIDE
     Dates: start: 20170314
  7. AZILECT [Concomitant]
     Active Substance: RASAGILINE MESYLATE
     Dates: start: 20170109
  8. COLACE [Concomitant]
     Active Substance: DOCUSATE SODIUM
     Dates: start: 20160725
  9. DONEPEZIL. [Concomitant]
     Active Substance: DONEPEZIL
     Dates: start: 20160725
  10. ENTACAPONE. [Concomitant]
     Active Substance: ENTACAPONE
     Dates: start: 20161012
  11. TYLENOL [Concomitant]
     Active Substance: ACETAMINOPHEN
     Dates: start: 20160914
  12. SINEMET [Concomitant]
     Active Substance: CARBIDOPA\LEVODOPA
     Dates: start: 20170102
  13. TAMSULOSIN [Concomitant]
     Active Substance: TAMSULOSIN
     Dates: start: 20160725
  14. TRAMADOL. [Concomitant]
     Active Substance: TRAMADOL
     Dates: start: 20160921
  15. SENNOSIDES. [Concomitant]
     Active Substance: SENNOSIDES
     Dates: start: 20170109

REACTIONS (2)
  - Fall [Unknown]
  - Hip fracture [Recovering/Resolving]

NARRATIVE: CASE EVENT DATE: 201707
